FAERS Safety Report 4609168-5 (Version None)
Quarter: 2005Q1

REPORT INFORMATION
  Report Type: 
  Country: None (occurrence: None)
  Receive Date: 20050315
  Receipt Date: 20050110
  Transmission Date: 20050727
  Serious: Yes (Disabling)
  Sender: FDA-Public Use
  Company Number: US-MERCK-0501USA00908

PATIENT
  Age: 27 Year
  Sex: Female
  Weight: 65 kg

DRUGS (10)
  1. VIOXX [Suspect]
     Indication: PAIN IN EXTREMITY
     Route: 048
     Dates: start: 20020209, end: 20030818
  2. VIOXX [Suspect]
     Route: 048
     Dates: start: 20020209, end: 20030818
  3. VIOXX [Suspect]
     Indication: ARTHRALGIA
     Route: 048
     Dates: start: 20020209, end: 20030818
  4. VIOXX [Suspect]
     Route: 048
     Dates: start: 20020209, end: 20030818
  5. GABAPENTIN [Concomitant]
     Route: 048
  6. EFFEXOR XR [Concomitant]
     Route: 048
  7. TOPAMAX [Concomitant]
     Route: 048
  8. SKELAXIN [Concomitant]
     Route: 048
  9. PROVIGIL [Concomitant]
     Route: 065
  10. OXYCONTIN [Concomitant]
     Route: 048

REACTIONS (8)
  - ASTHENIA [None]
  - BALANCE DISORDER [None]
  - COGNITIVE DISORDER [None]
  - FALL [None]
  - FATIGUE [None]
  - MYALGIA [None]
  - NEUROPATHY [None]
  - URINARY INCONTINENCE [None]
